FAERS Safety Report 15854533 (Version 1)
Quarter: 2019Q1

REPORT INFORMATION
  Report Type: Spontaneous
  Country: US (occurrence: US)
  Receive Date: 20190122
  Receipt Date: 20190122
  Transmission Date: 20190417
  Serious: Yes (Death)
  Sender: FDA-Public Use
  Company Number: None

PATIENT
  Sex: Female

DRUGS (1)
  1. HYOSCYAMINE SULFATE 0.125MG TABLETS [Suspect]
     Active Substance: HYOSCYAMINE SULFATE

REACTIONS (1)
  - Death [None]
